FAERS Safety Report 8599057-6 (Version None)
Quarter: 2012Q3

REPORT INFORMATION
  Report Type: 
  Country: None (occurrence: None)
  Receive Date: 20120816
  Receipt Date: 20120807
  Transmission Date: 20120928
  Serious: Yes (Death, Other)
  Sender: FDA-Public Use
  Company Number: US-BAYER-201018176NA

PATIENT
  Age: 58 Year
  Sex: Male
  Weight: 118 kg

DRUGS (26)
  1. CALCIUM ACETATE [Concomitant]
  2. IRBESARTAN [Concomitant]
  3. CLONIDINE [Concomitant]
  4. HYDRALAZINE HCL [Concomitant]
  5. VISIPAQUE [Concomitant]
     Indication: VENOGRAM
     Dates: start: 20030226, end: 20030226
  6. VISIPAQUE [Concomitant]
     Indication: FISTULOGRAM
     Dates: start: 20031006, end: 20031006
  7. GLIPIZIDE [Concomitant]
  8. FERROUS SULFATE TAB [Concomitant]
  9. NEPHROVITE [VIT C,VIT H,B5,B12,B9,B3,B6,B2,B1 HCL] [Concomitant]
  10. METOPROLOL TARTRATE [Concomitant]
  11. SEVELAMER HYDROCHLORIDE [Concomitant]
  12. TERAZOSIN HYDROCHLORIDE [Concomitant]
  13. DOVONEX [Concomitant]
     Route: 061
  14. CONTRAST MEDIA [Concomitant]
     Indication: FISTULOGRAM
     Dates: start: 20040123, end: 20040123
  15. CONTRAST MEDIA [Concomitant]
     Indication: ANGIOGRAM
     Dates: start: 20050628, end: 20050628
  16. SYNTHROID [Concomitant]
  17. ASPIRIN [Concomitant]
  18. FELODIPINE [Concomitant]
  19. CONTRAST MEDIA [Concomitant]
     Indication: NUCLEAR MAGNETIC RESONANCE IMAGING
     Route: 042
     Dates: start: 20010209, end: 20010209
  20. LASIX [Concomitant]
  21. MAGNEVIST [Suspect]
     Indication: FISTULOGRAM
     Dosage: APPROX 20ML VISIPAQUE AND APPROX 20ML MAGNEVIST
     Dates: start: 20031006, end: 20031006
  22. OMNISCAN [Concomitant]
     Indication: VENOGRAM
     Dates: start: 20030226, end: 20030226
  23. FOLIC ACID [Concomitant]
  24. IRON [Concomitant]
  25. INSULIN [Concomitant]
  26. EPO [Concomitant]

REACTIONS (28)
  - OEDEMA PERIPHERAL [None]
  - JOINT STIFFNESS [None]
  - GENERAL PHYSICAL HEALTH DETERIORATION [None]
  - DEFORMITY [None]
  - FIBROSIS [None]
  - SKIN HYPERTROPHY [None]
  - BLOOD CREATININE INCREASED [None]
  - ANXIETY [None]
  - ERYTHEMA [None]
  - BLISTER [None]
  - SKIN TIGHTNESS [None]
  - QUALITY OF LIFE DECREASED [None]
  - RENAL FAILURE [None]
  - CONTRAST MEDIA REACTION [None]
  - EMOTIONAL DISTRESS [None]
  - EXTREMITY CONTRACTURE [None]
  - NEPHROGENIC SYSTEMIC FIBROSIS [None]
  - BURNING SENSATION [None]
  - SKIN DISORDER [None]
  - RASH PAPULAR [None]
  - SKIN PLAQUE [None]
  - JOINT RANGE OF MOTION DECREASED [None]
  - SKIN EXFOLIATION [None]
  - MUSCLE CONTRACTURE [None]
  - PAIN [None]
  - SKIN INDURATION [None]
  - SKIN DISCOLOURATION [None]
  - INJURY [None]
